FAERS Safety Report 7508939-5 (Version None)
Quarter: 2011Q2

REPORT INFORMATION
  Report Type: 
  Country: None (occurrence: None)
  Receive Date: 20110527
  Receipt Date: 20110513
  Transmission Date: 20111010
  Serious: Yes (Other)
  Sender: FDA-Public Use
  Company Number: PHHY2011CA41280

PATIENT

DRUGS (4)
  1. ALISKIREN [Suspect]
     Dosage: UNK UKN, UNK
     Dates: end: 20100601
  2. DIURETICS [Concomitant]
  3. ACE INHIBITOR NOS [Concomitant]
  4. ANGIOTENSIN II ANTAGONISTS [Concomitant]

REACTIONS (3)
  - URINE ALBUMIN/CREATININE RATIO INCREASED [None]
  - GLYCOSYLATED HAEMOGLOBIN INCREASED [None]
  - RASH [None]
